FAERS Safety Report 5675127-7 (Version None)
Quarter: 2008Q1

REPORT INFORMATION
  Report Type: 
  Country: None (occurrence: None)
  Receive Date: 20080320
  Receipt Date: 20080310
  Transmission Date: 20080703
  Serious: Yes (Other)
  Sender: FDA-Public Use
  Company Number: JP-ROCHE-534832

PATIENT
  Age: 69 Year
  Sex: Female
  Weight: 48 kg

DRUGS (2)
  1. PEGASYS [Suspect]
     Route: 058
     Dates: start: 20070703, end: 20071030
  2. COPEGUS [Suspect]
     Dosage: DIVIDED INTO TWO DOSES
     Route: 048
     Dates: start: 20070703, end: 20071106

REACTIONS (1)
  - RETINAL DETACHMENT [None]
